FAERS Safety Report 6636092-9 (Version None)
Quarter: 2010Q1

REPORT INFORMATION
  Report Type: 
  Country: None (occurrence: None)
  Receive Date: 20100311
  Receipt Date: 20100226
  Transmission Date: 20100710
  Serious: Yes (Other)
  Sender: FDA-Public Use
  Company Number: 430003J10USA

PATIENT
  Age: 52 Year
  Sex: Female
  Weight: 79 kg

DRUGS (8)
  1. NOVANTRONE [Suspect]
     Indication: MULTIPLE SCLEROSIS
     Dosage: 24 MG, 1 IN 3 MONTHS, INTRAVENOUS (NOT OTHERWISE SPECIFIED)
     Route: 042
     Dates: start: 20050908, end: 20061101
  2. REBIF [Suspect]
     Indication: MULTIPLE SCLEROSIS
     Dosage: 44 MCG, 3 IN 1 WEEKS, SUBCUTANEOUS
     Route: 058
     Dates: start: 20050804
  3. METFORMIN HCL [Concomitant]
  4. LOPERAMIDE (LOPERAMIODE HYDROCHLORIDE) [Concomitant]
  5. ZOCOR [Concomitant]
  6. ACTOS [Concomitant]
  7. LOTREL (LOTREL /01289101/) [Concomitant]
  8. TYLENOL [Concomitant]

REACTIONS (1)
  - EJECTION FRACTION DECREASED [None]
